FAERS Safety Report 4925554-8 (Version None)
Quarter: 2006Q1

REPORT INFORMATION
  Report Type: 
  Country: None (occurrence: None)
  Receive Date: 20060228
  Receipt Date: 20040812
  Transmission Date: 20060701
  Serious: No
  Sender: FDA-Public Use
  Company Number: US-GLAXOSMITHKLINE-A0521959A

PATIENT
  Age: 9 Year
  Sex: Male
  Weight: 43.6 kg

DRUGS (2)
  1. LAMICTAL [Suspect]
     Indication: EPILEPSY
     Dosage: 50MG PER DAY
     Route: 048
     Dates: start: 20040713, end: 20040813
  2. TEGRETOL [Concomitant]

REACTIONS (2)
  - PERIPHERAL COLDNESS [None]
  - RASH [None]
